FAERS Safety Report 5042395-4 (Version None)
Quarter: 2006Q3

REPORT INFORMATION
  Report Type: 
  Country: None (occurrence: None)
  Receive Date: 20060705
  Receipt Date: 20060623
  Transmission Date: 20061208
  Serious: Yes (Other)
  Sender: FDA-Public Use
  Company Number: US-BRISTOL-MYERS SQUIBB COMPANY-13422316

PATIENT
  Age: 62 Year
  Sex: Female
  Weight: 84 kg

DRUGS (6)
  1. WARFARIN SODIUM [Suspect]
     Indication: THROMBOSIS
     Dosage: 7.5 MG ON MONDAY, WEDNESDAY, AND FRIDAY AND 5 MG ^THE REST OF THE DAYS^
     Dates: start: 20051101
  2. WARFARIN SODIUM [Suspect]
     Dosage: 5 MG DAILY ON TUESDAY, THURSDAY, SATURDAY AND SUNDAY
     Dates: start: 20051101
  3. POTASSIUM [Concomitant]
  4. ASPIRIN [Concomitant]
  5. HYDROCHLOROTHIAZIDE [Concomitant]
  6. VITAMIN B-12 [Concomitant]

REACTIONS (6)
  - EYE HAEMORRHAGE [None]
  - INTERNATIONAL NORMALISED RATIO FLUCTUATION [None]
  - MELAENA [None]
  - PNEUMONIA VIRAL [None]
  - SINUSITIS [None]
  - VISUAL DISTURBANCE [None]
